FAERS Safety Report 9291362 (Version 1)
Quarter: 2013Q2

REPORT INFORMATION
  Report Type: Spontaneous
  Country: US (occurrence: US)
  Receive Date: 20130515
  Receipt Date: 20130515
  Transmission Date: 20140414
  Serious: Yes (Other)
  Sender: FDA-Public Use
  Company Number: US-SHIRE-ALL1-2013-02996

PATIENT
  Age: 51 Year
  Sex: Female
  Weight: 107.94 kg

DRUGS (10)
  1. CARBATROL EXTENDED RELEASE [Suspect]
     Indication: CONVULSION
     Dosage: 400 MG (TWO 200 MG CAPSULES), 2X/DAY:BID
     Route: 048
     Dates: start: 201205, end: 2012
  2. PRILOSEC                           /00661201/ [Concomitant]
     Indication: GASTROOESOPHAGEAL REFLUX DISEASE
     Dosage: 20 MG, 3X/DAY:TID
     Route: 048
  3. PRILOSEC                           /00661201/ [Concomitant]
     Indication: GASTRIC ULCER
  4. FLEXERIL                           /00428402/ [Concomitant]
     Indication: MUSCLE SPASMS
     Dosage: 10 MG, 3X/DAY:TID
     Route: 048
  5. FLEXERIL                           /00428402/ [Concomitant]
     Indication: INTERVERTEBRAL DISC PROTRUSION
  6. FLEXERIL                           /00428402/ [Concomitant]
     Indication: FIBROMYALGIA
  7. PRENATAL VITAMINS                  /02014401/ [Concomitant]
     Indication: SUPPLEMENTATION THERAPY
     Dosage: UNK, UNKNOWN
     Route: 048
  8. VITAMIN C                          /00008001/ [Concomitant]
     Indication: SUPPLEMENTATION THERAPY
     Dosage: UNK, 1X/DAY:QD
     Route: 048
  9. VITAMIN B6 [Concomitant]
     Indication: SUPPLEMENTATION THERAPY
     Dosage: UNK, UNKNOWN
     Route: 048
  10. VITAMIN B12                        /00056201/ [Concomitant]
     Indication: SUPPLEMENTATION THERAPY
     Dosage: UNK, UNKNOWN
     Route: 048

REACTIONS (7)
  - Convulsion [Recovered/Resolved]
  - Gait disturbance [Recovered/Resolved]
  - Pain in extremity [Recovering/Resolving]
  - Muscle spasms [Recovering/Resolving]
  - Muscle disorder [Recovering/Resolving]
  - Oedema peripheral [Recovering/Resolving]
  - Product substitution issue [None]
